FAERS Safety Report 25930786 (Version 2)
Quarter: 2025Q4

REPORT INFORMATION
  Report Type: Spontaneous
  Country: US (occurrence: US)
  Receive Date: 20251016
  Receipt Date: 20251022
  Transmission Date: 20260117
  Serious: Yes (Other)
  Sender: NOVO NORDISK
  Company Number: US-NOVOPROD-1539158

PATIENT
  Sex: Female

DRUGS (1)
  1. OZEMPIC [Suspect]
     Active Substance: SEMAGLUTIDE
     Indication: Diabetes mellitus
     Dosage: 2 MG, QW

REACTIONS (3)
  - Macular dystrophy congenital [Unknown]
  - Condition aggravated [Unknown]
  - Cataract operation [Unknown]

NARRATIVE: CASE EVENT DATE: 20251008
